FAERS Safety Report 10141132 (Version 2)
Quarter: 2014Q2

REPORT INFORMATION
  Report Type: Report from Study
  Country: CA (occurrence: CA)
  Receive Date: 20140429
  Receipt Date: 20140429
  Transmission Date: 20141212
  Serious: Yes (Other)
  Sender: FDA-Public Use
  Company Number: CA-ABBVIE-14P-028-1216616-00

PATIENT
  Age: 34 Year
  Sex: Male

DRUGS (2)
  1. HUMIRA [Suspect]
     Indication: CROHN^S DISEASE
     Route: 058
     Dates: start: 20110429, end: 20140106
  2. HUMIRA [Suspect]
     Dosage: INDUCTION DOSE
     Route: 058
     Dates: start: 20140326

REACTIONS (10)
  - Systemic lupus erythematosus rash [Recovering/Resolving]
  - Lower respiratory tract infection [Unknown]
  - Pain in extremity [Unknown]
  - Crohn^s disease [Unknown]
  - Fatigue [Unknown]
  - Muscle spasms [Unknown]
  - Myalgia [Unknown]
  - Hypersomnia [Unknown]
  - Sinusitis [Unknown]
  - Tooth infection [Unknown]
